FAERS Safety Report 7328893-9 (Version None)
Quarter: 2011Q1

REPORT INFORMATION
  Report Type: 
  Country: None (occurrence: None)
  Receive Date: 20110303
  Receipt Date: 20110226
  Transmission Date: 20110831
  Serious: Yes (Death, Hospitalization)
  Sender: FDA-Public Use
  Company Number: NL-ROCHE-762608

PATIENT
  Sex: Female

DRUGS (7)
  1. METOPROLOL [Concomitant]
  2. PREDNISOLONE [Concomitant]
  3. CAPECITABINE [Suspect]
     Indication: COLORECTAL CANCER
     Route: 048
     Dates: start: 20100622
  4. BEVACIZUMAB [Suspect]
     Indication: COLORECTAL CANCER
     Route: 042
     Dates: start: 20100803
  5. OXALIPLATIN [Suspect]
     Indication: COLORECTAL CANCER
     Route: 042
     Dates: start: 20100622
  6. HCT [Concomitant]
  7. PARACETAMOL [Concomitant]

REACTIONS (2)
  - MALAISE [None]
  - DISEASE PROGRESSION [None]
